FAERS Safety Report 8991128 (Version 1)
Quarter: 2012Q4

REPORT INFORMATION
  Report Type: Spontaneous
  Country: US (occurrence: None)
  Receive Date: 20121227
  Receipt Date: 20121227
  Transmission Date: 20130627
  Serious: No
  Sender: FDA-Public Use
  Company Number: None

PATIENT
  Sex: Female

DRUGS (1)
  1. ENBREL 25MG VIALS AMGEN [Suspect]
     Indication: RHEUMATOID ARTHRITIS
     Dosage: 25mg twice weekly SQ
     Route: 058

REACTIONS (2)
  - Visual impairment [None]
  - Halo vision [None]
